FAERS Safety Report 10035449 (Version 4)
Quarter: 2014Q2

REPORT INFORMATION
  Report Type: Spontaneous
  Country: US (occurrence: US)
  Receive Date: 20140325
  Receipt Date: 20140520
  Transmission Date: 20141212
  Serious: No
  Sender: FDA-Public Use
  Company Number: US-PFIZER INC-2014082132

PATIENT
  Age: 70 Year
  Sex: Female
  Weight: 63.49 kg

DRUGS (1)
  1. ADVIL GELCAPS [Suspect]
     Indication: PAIN
     Dosage: 200 MG, AS NEEDED
     Route: 048
     Dates: start: 2009

REACTIONS (5)
  - Poor quality drug administered [Unknown]
  - Drug ineffective [Unknown]
  - Insomnia [Unknown]
  - Irritability [Unknown]
  - Product commingling [Unknown]
